FAERS Safety Report 6291713-8 (Version None)
Quarter: 2009Q3

REPORT INFORMATION
  Report Type: 
  Country: None (occurrence: None)
  Receive Date: 20090730
  Receipt Date: 20090730
  Transmission Date: 20100115
  Serious: Yes (Other)
  Sender: FDA-Public Use
  Company Number: None

PATIENT
  Age: 57 Year
  Sex: Female
  Weight: 63.5036 kg

DRUGS (1)
  1. TERBINEAFINE 250MG APOTEX [Suspect]
     Indication: ONYCHOMYCOSIS
     Dosage: 250MG QD PO
     Route: 048
     Dates: start: 20090602, end: 20090707

REACTIONS (3)
  - AGEUSIA [None]
  - DYSGEUSIA [None]
  - WEIGHT DECREASED [None]
